FAERS Safety Report 14060564 (Version 1)
Quarter: 2017Q4

REPORT INFORMATION
  Report Type: Spontaneous
  Country: FR (occurrence: FR)
  Receive Date: 20171007
  Receipt Date: 20171007
  Transmission Date: 20180321
  Serious: Yes (Other)
  Sender: FDA-Public Use
  Company Number: FR-MERCK KGAA-2029234

PATIENT
  Sex: Male

DRUGS (1)
  1. NOVOTHYROX [Suspect]
     Active Substance: LEVOTHYROXINE SODIUM
     Indication: HYPOTHYROIDISM
     Route: 048
     Dates: start: 2017

REACTIONS (6)
  - Limb discomfort [Unknown]
  - Gait disturbance [Unknown]
  - Heart rate decreased [Unknown]
  - Musculoskeletal pain [Unknown]
  - Dyspnoea at rest [Unknown]
  - Fatigue [Unknown]

NARRATIVE: CASE EVENT DATE: 2017
